FAERS Safety Report 5453549-7 (Version None)
Quarter: 2007Q3

REPORT INFORMATION
  Report Type: 
  Country: None (occurrence: None)
  Receive Date: 20070913
  Receipt Date: 20070828
  Transmission Date: 20080115
  Serious: Yes (Other)
  Sender: FDA-Public Use
  Company Number: 2007EU001208

PATIENT
  Age: 45 Year
  Sex: Female

DRUGS (5)
  1. PROGRAF [Suspect]
     Indication: DERMATITIS ATOPIC
     Dosage: 0.1% BID, TOPICAL; 0.03 %, /D, TOPICAL; 0.1 %, /D, TOPICAL
     Route: 061
     Dates: start: 20070516, end: 20070528
  2. PROGRAF [Suspect]
     Indication: DERMATITIS ATOPIC
     Dosage: 0.1% BID, TOPICAL; 0.03 %, /D, TOPICAL; 0.1 %, /D, TOPICAL
     Route: 061
     Dates: start: 20070404
  3. PROGRAF [Suspect]
     Indication: DERMATITIS ATOPIC
     Dosage: 0.1% BID, TOPICAL; 0.03 %, /D, TOPICAL; 0.1 %, /D, TOPICAL
     Route: 061
     Dates: start: 20070427
  4. DIPROBASE               (PARAFFIN, LIQUID) [Concomitant]
  5. DERMOL (ISOPROPYL MYRISTATE, PARAFFIN, LIQUID, CHLORHEXIDINE HCL) [Concomitant]

REACTIONS (9)
  - ERYTHEMA [None]
  - FATIGUE [None]
  - HYPERSENSITIVITY [None]
  - MALAISE [None]
  - MYALGIA [None]
  - NAUSEA [None]
  - PRESYNCOPE [None]
  - PRURITUS [None]
  - RASH GENERALISED [None]
